FAERS Safety Report 4438664-9 (Version None)
Quarter: 2004Q3

REPORT INFORMATION
  Report Type: 
  Country: None (occurrence: None)
  Receive Date: 20040830
  Receipt Date: 20040830
  Transmission Date: 20050211
  Serious: Yes (Life-Threatening)
  Sender: FDA-Public Use
  Company Number: None

PATIENT
  Sex: Female

DRUGS (1)
  1. GLUCOPHAGE [Suspect]
     Dosage: ORAL
     Route: 048

REACTIONS (3)
  - METABOLIC ACIDOSIS [None]
  - NAUSEA [None]
  - VOMITING [None]
